FAERS Safety Report 6443853-8 (Version None)
Quarter: 2009Q4

REPORT INFORMATION
  Report Type: 
  Country: None (occurrence: None)
  Receive Date: 20091113
  Receipt Date: 20091102
  Transmission Date: 20100525
  Serious: Yes (Hospitalization, Other)
  Sender: FDA-Public Use
  Company Number: 427518

PATIENT
  Age: 68 Year
  Sex: Female

DRUGS (11)
  1. FENTANYL-100 [Suspect]
     Dates: start: 20090727
  2. MIDAZOLAM HYDROCHLORIDE [Suspect]
     Dates: start: 20090721
  3. PROPOFOL [Suspect]
     Dates: start: 20090721
  4. (INVESTIGATIONAL DRUG) [Suspect]
     Indication: TRANSITIONAL CELL CARCINOMA
     Dosage: 20 MG, 1 WEEK, INTRAVENOUS
     Route: 042
     Dates: start: 20090527
  5. (INVESTIGATIONAL DRUG) [Suspect]
     Indication: TRANSITIONAL CELL CARCINOMA
     Dosage: 25 MG,, INTRAVENOUS
     Route: 042
     Dates: start: 20090128, end: 20090520
  6. GENTAMICIN [Concomitant]
  7. IBUPROFEN [Concomitant]
  8. OMEPRAZOLE [Concomitant]
  9. ONDANSETRON [Concomitant]
  10. (PIRITON) [Concomitant]
  11. TRIMETHOPRIM [Concomitant]

REACTIONS (11)
  - BLOOD ALBUMIN DECREASED [None]
  - BLOOD CALCIUM DECREASED [None]
  - BLOOD FIBRINOGEN INCREASED [None]
  - DYSPNOEA [None]
  - HAEMATURIA [None]
  - INFUSION SITE PAIN [None]
  - MALAISE [None]
  - NEUTROPENIA [None]
  - PULMONARY EMBOLISM [None]
  - PYREXIA [None]
  - VOMITING [None]
